FAERS Safety Report 11189652 (Version 5)
Quarter: 2018Q3

REPORT INFORMATION
  Report Type: Spontaneous
  Country: US (occurrence: US)
  Receive Date: 20150615
  Receipt Date: 20180917
  Transmission Date: 20181010
  Serious: Yes (Hospitalization, Other)
  Sender: FDA-Public Use
  Company Number: US-DSJP-DSU-2015-107028

PATIENT

DRUGS (2)
  1. AZOR [Suspect]
     Active Substance: AMLODIPINE BESYLATE\OLMESARTAN MEDOXOMIL
     Indication: HYPERTENSION
     Dosage: 10/40 MG, QD
     Route: 048
     Dates: start: 2007, end: 20131001
  2. BENICAR [Suspect]
     Active Substance: OLMESARTAN MEDOXOMIL
     Indication: HYPERTENSION
     Dosage: 40 MG, QD
     Dates: start: 20131001, end: 201404

REACTIONS (19)
  - Gastritis haemorrhagic [Unknown]
  - Inflammatory bowel disease [Unknown]
  - Gastric ulcer [Unknown]
  - Syncope [Recovered/Resolved]
  - Sprue-like enteropathy [Unknown]
  - Haematemesis [Unknown]
  - Irritable bowel syndrome [Unknown]
  - Coeliac disease [Recovered/Resolved]
  - Pancreatitis chronic [Unknown]
  - Hepatic lesion [Unknown]
  - Gastrointestinal bacterial overgrowth [Unknown]
  - Dyspepsia [Not Recovered/Not Resolved]
  - Anxiety [Not Recovered/Not Resolved]
  - Angiomyolipoma [Unknown]
  - Haemorrhoids [Unknown]
  - Proctalgia [Unknown]
  - Acute kidney injury [Unknown]
  - Diverticulum [Unknown]
  - Bile duct stone [Unknown]

NARRATIVE: CASE EVENT DATE: 20130205
